FAERS Safety Report 5699626-7 (Version None)
Quarter: 2008Q2

REPORT INFORMATION
  Report Type: 
  Country: None (occurrence: None)
  Receive Date: 20080410
  Receipt Date: 20080402
  Transmission Date: 20081010
  Serious: Yes (Other)
  Sender: FDA-Public Use
  Company Number: PHHY2008JP02740

PATIENT
  Sex: Female

DRUGS (2)
  1. LOCHOL [Suspect]
     Dosage: 10 MG, UNK
     Route: 048
  2. ARICEPT D [Concomitant]
     Dosage: 5 MG, UNK
     Route: 048

REACTIONS (6)
  - BLOOD CHOLESTEROL INCREASED [None]
  - CONVULSION [None]
  - DIZZINESS [None]
  - EMOTIONAL DISORDER [None]
  - ISCHAEMIA [None]
  - RESTLESSNESS [None]
